FAERS Safety Report 8311181-1 (Version None)
Quarter: 2012Q2

REPORT INFORMATION
  Report Type: 
  Country: None (occurrence: None)
  Receive Date: 20120423
  Receipt Date: 20120410
  Transmission Date: 20120825
  Serious: No
  Sender: FDA-Public Use
  Company Number: DSA_56164_2012

PATIENT

DRUGS (4)
  1. METRONIDAZOLE [Suspect]
     Indication: HELICOBACTER INFECTION
     Dosage: (500 MG BID)
  2. CLARITHROMYCIN [Suspect]
     Indication: HELICOBACTER INFECTION
     Dosage: (500 MG BID)
  3. LANSOPRAZOLE [Suspect]
     Indication: HELICOBACTER INFECTION
     Dosage: (30 MG BID)
  4. AMOXICILLIN [Suspect]
     Indication: HELICOBACTER INFECTION
     Dosage: (1 G BID)

REACTIONS (1)
  - RHABDOMYOLYSIS [None]
